FAERS Safety Report 6192948-5 (Version None)
Quarter: 2009Q2

REPORT INFORMATION
  Report Type: 
  Country: None (occurrence: None)
  Receive Date: 20090518
  Receipt Date: 20090504
  Transmission Date: 20091009
  Serious: Yes (Hospitalization, Other)
  Sender: FDA-Public Use
  Company Number: US-BIOGENIDEC-2008BI017763

PATIENT
  Age: 36 Year
  Sex: Female
  Weight: 51 kg

DRUGS (6)
  1. AVONEX [Suspect]
     Indication: MULTIPLE SCLEROSIS
     Route: 030
     Dates: start: 20080228
  2. MIRALAX [Concomitant]
     Indication: DRUG USE FOR UNKNOWN INDICATION
  3. CLONAZEPAM [Concomitant]
     Indication: DRUG USE FOR UNKNOWN INDICATION
  4. AMBIEN [Concomitant]
     Indication: DRUG USE FOR UNKNOWN INDICATION
  5. BUSPAR [Concomitant]
     Indication: DRUG USE FOR UNKNOWN INDICATION
  6. AMITIZA [Concomitant]
     Indication: DRUG USE FOR UNKNOWN INDICATION

REACTIONS (3)
  - CARCINOID TUMOUR OF THE APPENDIX [None]
  - GASTRIC CANCER [None]
  - RENAL CANCER [None]
